FAERS Safety Report 14128985 (Version 1)
Quarter: 2017Q4

REPORT INFORMATION
  Report Type: Spontaneous
  Country: US (occurrence: US)
  Receive Date: 20171026
  Receipt Date: 20171026
  Transmission Date: 20180321
  Serious: No
  Sender: FDA-Public Use
  Company Number: US-GLAXOSMITHKLINE-US2017GSK163990

PATIENT
  Sex: Female

DRUGS (3)
  1. SPIRIVA [Concomitant]
     Active Substance: TIOTROPIUM BROMIDE MONOHYDRATE
  2. BREO ELLIPTA [Suspect]
     Active Substance: FLUTICASONE FUROATE\VILANTEROL TRIFENATATE
     Indication: CHRONIC OBSTRUCTIVE PULMONARY DISEASE
     Dosage: UNK
     Dates: start: 2016
  3. BROVANA [Suspect]
     Active Substance: ARFORMOTEROL TARTRATE
     Indication: CHRONIC OBSTRUCTIVE PULMONARY DISEASE
     Dosage: 15 UG, BID
     Route: 055
     Dates: start: 2013

REACTIONS (9)
  - Loss of personal independence in daily activities [Unknown]
  - Chest discomfort [Unknown]
  - Muscle spasms [Unknown]
  - Malaise [Recovered/Resolved]
  - Dizziness [Unknown]
  - Feeling hot [Unknown]
  - Nausea [Unknown]
  - Asthenia [Unknown]
  - Extra dose administered [Unknown]

NARRATIVE: CASE EVENT DATE: 201709
